FAERS Safety Report 10987082 (Version 1)
Quarter: 2015Q1

REPORT INFORMATION
  Report Type: Spontaneous
  Country: US (occurrence: None)
  Receive Date: 20150316
  Receipt Date: 20150316
  Transmission Date: 20150721
  Serious: Yes (Hospitalization, Other)
  Sender: FDA-Public Use
  Company Number: 1000070891

PATIENT
  Age: 76 Year
  Sex: Male
  Weight: 117 kg

DRUGS (5)
  1. SYMBICORT (BUDESONIDE W/FORMOTEROL FUMARATE) (BUDESONIDE W/FORMOTEROL FUMARATE) [Concomitant]
  2. PREDNISONE. [Concomitant]
     Active Substance: PREDNISONE
  3. ALBUTEROL SULFATE. [Concomitant]
     Active Substance: ALBUTEROL SULFATE
  4. DALIRESP [Suspect]
     Active Substance: ROFLUMILAST
     Indication: CHRONIC OBSTRUCTIVE PULMONARY DISEASE
     Route: 048
     Dates: start: 20140905, end: 20140908
  5. SPIRIVA (TIOTROPIUM BROMIDE)(TIOTROPIUM BROMIDE) [Concomitant]

REACTIONS (11)
  - Diarrhoea [None]
  - Decreased appetite [None]
  - Eye pain [None]
  - Cough [None]
  - Vision blurred [None]
  - Dyspnoea [None]
  - Chronic obstructive pulmonary disease [None]
  - Headache [None]
  - Back pain [None]
  - Insomnia [None]
  - Weight decreased [None]

NARRATIVE: CASE EVENT DATE: 20140905
